FAERS Safety Report 10418349 (Version 1)
Quarter: 2014Q2

REPORT INFORMATION
  Report Type: Spontaneous
  Country: US (occurrence: None)
  Receive Date: 20140613
  Receipt Date: 20140613
  Transmission Date: 20141212
  Serious: Yes (Other)
  Sender: FDA-Public Use
  Company Number: 1351445

PATIENT
  Age: 73 Year
  Sex: Male

DRUGS (5)
  1. VEMURAFENIB [Suspect]
     Indication: MALIGNANT MELANOMA
     Route: 048
     Dates: start: 20131218
  2. TAMIFLU (OSELTAMIVIR PHOSPHATE) [Suspect]
     Indication: PRODUCT USED FOR UNKNOWN INDICATION
  3. ATIVAN (LORAZEPAM) [Concomitant]
  4. PANTOPRAZOL (PANTOPRAZOLE) [Concomitant]
  5. ENOXAPARIN (ENOXAPARIN SODIUM) [Concomitant]

REACTIONS (4)
  - Dyspnoea [None]
  - Nausea [None]
  - Diarrhoea [None]
  - Constipation [None]
